FAERS Safety Report 19972835 (Version 1)
Quarter: 2021Q4

REPORT INFORMATION
  Report Type: Spontaneous
  Country: JP (occurrence: JP)
  Receive Date: 20211020
  Receipt Date: 20211020
  Transmission Date: 20220303
  Serious: Yes (Other)
  Sender: FDA-Public Use
  Company Number: JP-NOVARTISPH-NVSJ2021JP017013

PATIENT

DRUGS (3)
  1. BEOVU [Suspect]
     Active Substance: BROLUCIZUMAB-DBLL
     Indication: Product used for unknown indication
     Dosage: 6 MG
     Route: 031
  2. BEOVU [Suspect]
     Active Substance: BROLUCIZUMAB-DBLL
     Dosage: 6 MG
     Route: 031
  3. BEOVU [Suspect]
     Active Substance: BROLUCIZUMAB-DBLL
     Dosage: 6 MG
     Route: 031

REACTIONS (8)
  - Keratic precipitates [Unknown]
  - Vitritis [Unknown]
  - Fundoscopy abnormal [Unknown]
  - Blindness transient [Unknown]
  - Anterior chamber flare [Unknown]
  - Vitreous opacities [Unknown]
  - Anterior chamber cell [Unknown]
  - Conjunctival hyperaemia [Unknown]
